FAERS Safety Report 8480734-2 (Version None)
Quarter: 2012Q2

REPORT INFORMATION
  Report Type: 
  Country: None (occurrence: None)
  Receive Date: 20120625
  Receipt Date: 20120625
  Transmission Date: 20120825
  Serious: Yes (Other)
  Sender: FDA-Public Use
  Company Number: None

PATIENT
  Sex: Female

DRUGS (1)
  1. ZIPRASIDONE HCL [Suspect]
     Dosage: 80MG 2 PO QHS
     Route: 048
     Dates: start: 20120524, end: 20120622

REACTIONS (4)
  - PRODUCT SUBSTITUTION ISSUE [None]
  - ANXIETY [None]
  - PANIC ATTACK [None]
  - STRESS [None]
